FAERS Safety Report 5599180-4 (Version None)
Quarter: 2008Q1

REPORT INFORMATION
  Report Type: 
  Country: None (occurrence: None)
  Receive Date: 20080117
  Receipt Date: 20080107
  Transmission Date: 20080703
  Serious: No
  Sender: FDA-Public Use
  Company Number: 231538J07USA

PATIENT
  Age: 65 Year
  Sex: Male

DRUGS (3)
  1. REBIF [Suspect]
     Indication: MULTIPLE SCLEROSIS
     Dosage: 44 MCG, 3 IN 1 WEEKS, SUBCUTANEOUS
     Route: 058
     Dates: start: 20071009, end: 20071214
  2. METOPROLOL TARTRATE [Concomitant]
  3. LIPITOR [Concomitant]

REACTIONS (1)
  - SPINAL OPERATION [None]
